FAERS Safety Report 7741883-7 (Version None)
Quarter: 2011Q3

REPORT INFORMATION
  Report Type: 
  Country: None (occurrence: None)
  Receive Date: 20110912
  Receipt Date: 20110829
  Transmission Date: 20111222
  Serious: Yes (Hospitalization)
  Sender: FDA-Public Use
  Company Number: US-JNJFOC-20110606777

PATIENT
  Sex: Male
  Weight: 83.01 kg

DRUGS (5)
  1. REMICADE [Suspect]
     Route: 042
     Dates: start: 20100901, end: 20110418
  2. UROXATRAL [Concomitant]
  3. LEVOTHYROXINE SODIUM [Concomitant]
     Indication: HYPOTHYROIDISM
  4. FOLIC ACID [Concomitant]
  5. REMICADE [Suspect]
     Indication: COLITIS ULCERATIVE
     Route: 042
     Dates: start: 20071109, end: 20100701

REACTIONS (4)
  - DIFFUSE LARGE B-CELL LYMPHOMA STAGE IV [None]
  - RIB FRACTURE [None]
  - PNEUMOTHORAX [None]
  - PLEURAL EFFUSION [None]
